FAERS Safety Report 18897749 (Version 1)
Quarter: 2021Q1

REPORT INFORMATION
  Report Type: Spontaneous
  Country: US (occurrence: US)
  Receive Date: 20210215
  Receipt Date: 20210215
  Transmission Date: 20210420
  Serious: Yes (Other)
  Sender: FDA-Public Use
  Company Number: None

PATIENT
  Age: 69 Year
  Sex: Male

DRUGS (6)
  1. REPATHA [Suspect]
     Active Substance: EVOLOCUMAB
  2. LISINOPRIL. [Concomitant]
     Active Substance: LISINOPRIL
  3. CARVEDILOL 6.25MG [Concomitant]
     Active Substance: CARVEDILOL
  4. ROSUVASTATIN 10MG [Concomitant]
     Active Substance: ROSUVASTATIN
  5. PANTOPRAZOLE 40MG [Concomitant]
     Active Substance: PANTOPRAZOLE SODIUM
  6. TRIAMTERENE/HCTZ 37.5?25MG TAB [Concomitant]

REACTIONS (3)
  - Pulmonary pain [None]
  - Back pain [None]
  - Painful respiration [None]

NARRATIVE: CASE EVENT DATE: 20201215
